FAERS Safety Report 9322780 (Version 1)
Quarter: 2013Q2

REPORT INFORMATION
  Report Type: Spontaneous
  Country: US (occurrence: US)
  Receive Date: 20130601
  Receipt Date: 20130601
  Transmission Date: 20140414
  Serious: No
  Sender: FDA-Public Use
  Company Number: US-B.I. PHARMACEUTICALS,INC./RIDGEFIELD-2013-BI-14955BP

PATIENT
  Age: 52 Year
  Sex: Male
  Weight: 132 kg

DRUGS (3)
  1. COMBIVENT [Suspect]
     Indication: PNEUMONIA
     Dates: start: 20130516
  2. HUMIRA [Concomitant]
     Indication: RHEUMATOID ARTHRITIS
     Dates: start: 201302
  3. METHOTREXATE [Concomitant]
     Indication: RHEUMATOID ARTHRITIS
     Dates: start: 201205

REACTIONS (2)
  - Cough [Not Recovered/Not Resolved]
  - Product quality issue [Recovered/Resolved]
